FAERS Safety Report 22175247 (Version 1)
Quarter: 2023Q2

REPORT INFORMATION
  Report Type: Report from Study
  Country: US (occurrence: None)
  Receive Date: 20230405
  Receipt Date: 20230405
  Transmission Date: 20230722
  Serious: Yes (Hospitalization, Other)
  Sender: FDA-Public Use
  Company Number: US-ROCHE-2779908

PATIENT
  Age: 68 Year
  Sex: Male

DRUGS (7)
  1. ATEZOLIZUMAB [Suspect]
     Active Substance: ATEZOLIZUMAB
     Indication: Gastrointestinal carcinoma
     Dosage: DATE OF LAST DOSE : 22/JAN/2021
     Route: 042
     Dates: start: 20210122
  2. COBIMETINIB [Suspect]
     Active Substance: COBIMETINIB
     Indication: Gastrointestinal carcinoma
     Dosage: DATE OF LAST DOSE : 04/FEB/2021
     Route: 048
     Dates: start: 20210122
  3. HYDROXYCHLOROQUINE [Suspect]
     Active Substance: HYDROXYCHLOROQUINE
     Indication: Gastrointestinal carcinoma
     Dosage: DATE OF NEXT DOSE: 04/FEB/2021
     Route: 048
     Dates: start: 20210122
  4. HALOPERIDOL [Concomitant]
     Active Substance: HALOPERIDOL
  5. PANTOPRAZOLE [Concomitant]
     Active Substance: PANTOPRAZOLE
  6. ONDANSETRON [Concomitant]
     Active Substance: ONDANSETRON
  7. TRIAMCINOLONE [Concomitant]
     Active Substance: TRIAMCINOLONE

REACTIONS (2)
  - Obstruction gastric [Recovered/Resolved]
  - Gastrointestinal disorder [Unknown]

NARRATIVE: CASE EVENT DATE: 20210204
